FAERS Safety Report 19358541 (Version 1)
Quarter: 2021Q2

REPORT INFORMATION
  Report Type: Spontaneous
  Country: US (occurrence: US)
  Receive Date: 20210602
  Receipt Date: 20210602
  Transmission Date: 20210717
  Serious: Yes (Hospitalization)
  Sender: FDA-Public Use
  Company Number: None

PATIENT
  Age: 76 Year
  Sex: Female

DRUGS (6)
  1. OMEPRAZOLE CAP 20MG [Concomitant]
     Active Substance: OMEPRAZOLE
     Dates: start: 20201008
  2. SILDENAFIL. [Suspect]
     Active Substance: SILDENAFIL
     Indication: ESSENTIAL HYPERTENSION
     Route: 048
     Dates: start: 20210403
  3. ATORVASTATIN TAB 40MG [Concomitant]
     Active Substance: ATORVASTATIN
     Dates: start: 20201015
  4. METOPROL SUC TAB 50MG ER [Concomitant]
     Dates: start: 20210113
  5. LOSARTAN/HCT TAB 50?12.5 [Concomitant]
     Dates: start: 20201008
  6. LEVOTHYROXIN TAB 25MCG [Concomitant]
     Dates: start: 20201021

REACTIONS (3)
  - Oxygen saturation decreased [None]
  - Therapy interrupted [None]
  - Dyspnoea [None]

NARRATIVE: CASE EVENT DATE: 20210511
